FAERS Safety Report 5859639-9 (Version None)
Quarter: 2008Q3

REPORT INFORMATION
  Report Type: 
  Country: None (occurrence: None)
  Receive Date: 20080827
  Receipt Date: 20080819
  Transmission Date: 20090109
  Serious: Yes (Other)
  Sender: FDA-Public Use
  Company Number: GB-JNJFOC-20071106448

PATIENT
  Sex: Female
  Weight: 57 kg

DRUGS (6)
  1. SPORANOX [Suspect]
     Indication: CANDIDIASIS
     Route: 065
  2. CEPHALEXIN [Concomitant]
     Indication: URINARY TRACT INFECTION
     Route: 048
  3. FOLIC ACID [Concomitant]
     Indication: PREGNANCY
     Route: 048
  4. CITALOPRAM HYDROBROMIDE [Concomitant]
     Indication: DEPRESSION
     Route: 048
  5. AMITRIPTYLINE HCL [Concomitant]
     Indication: DEPRESSION
     Route: 048
  6. FLUOXETINE [Concomitant]
     Indication: DEPRESSION
     Route: 048

REACTIONS (3)
  - ABORTION THREATENED [None]
  - DRUG EXPOSURE DURING PREGNANCY [None]
  - VOMITING [None]
